FAERS Safety Report 10831285 (Version 1)
Quarter: 2015Q1

REPORT INFORMATION
  Report Type: Spontaneous
  Country: MX (occurrence: MX)
  Receive Date: 20150219
  Receipt Date: 20150219
  Transmission Date: 20150721
  Serious: Yes (Death, Life-Threatening)
  Sender: FDA-Public Use
  Company Number: MX-B.I. PHARMACEUTICALS,INC./RIDGEFIELD-2015-BI-08231MX

PATIENT
  Age: 64 Year
  Sex: Female

DRUGS (1)
  1. PRADAXAR [Suspect]
     Active Substance: DABIGATRAN ETEXILATE
     Indication: POSTOPERATIVE CARE
     Route: 048

REACTIONS (1)
  - Haemorrhage [Fatal]

NARRATIVE: CASE EVENT DATE: 201502
